FAERS Safety Report 10067384 (Version 1)
Quarter: 2014Q2

REPORT INFORMATION
  Report Type: Spontaneous
  Country: MX (occurrence: MX)
  Receive Date: 20140409
  Receipt Date: 20140409
  Transmission Date: 20141212
  Serious: No
  Sender: FDA-Public Use
  Company Number: MX-JNJFOC-20140318467

PATIENT
  Age: 73 Year
  Sex: Male
  Weight: 52 kg

DRUGS (1)
  1. DUROGESIC D-TRANS [Suspect]
     Indication: CANCER PAIN
     Route: 062

REACTIONS (3)
  - Therapy cessation [Unknown]
  - Inappropriate schedule of drug administration [Unknown]
  - Drug dose omission [Unknown]
